FAERS Safety Report 15957696 (Version 1)
Quarter: 2019Q1

REPORT INFORMATION
  Report Type: Spontaneous
  Country: US (occurrence: US)
  Receive Date: 20190213
  Receipt Date: 20190213
  Transmission Date: 20190417
  Serious: No
  Sender: FDA-Public Use
  Company Number: US-SA-2019SA039440

PATIENT
  Sex: Female

DRUGS (12)
  1. PROGESTERONE. [Concomitant]
     Active Substance: PROGESTERONE
  2. MECLIZINE [Concomitant]
     Active Substance: MECLIZINE HYDROCHLORIDE
  3. IBUPROFEN. [Concomitant]
     Active Substance: IBUPROFEN
  4. BACLOFEN. [Concomitant]
     Active Substance: BACLOFEN
  5. PREDNISONE. [Concomitant]
     Active Substance: PREDNISONE
  6. METHYLPRED [Concomitant]
     Active Substance: METHYLPREDNISOLONE
  7. ZOLPIDEM TARTRATE. [Concomitant]
     Active Substance: ZOLPIDEM TARTRATE
  8. HYDROCODONE/ACETAMINOPHEN [Concomitant]
     Active Substance: ACETAMINOPHEN\HYDROCODONE
  9. AUBAGIO [Suspect]
     Active Substance: TERIFLUNOMIDE
     Dosage: 1 DF, QD
     Route: 048
     Dates: start: 20181227
  10. FAMOTIDINE. [Concomitant]
     Active Substance: FAMOTIDINE
  11. SIMVASTATIN. [Concomitant]
     Active Substance: SIMVASTATIN
  12. DIAZEPAM. [Concomitant]
     Active Substance: DIAZEPAM

REACTIONS (1)
  - Movement disorder [Unknown]
